FAERS Safety Report 17527808 (Version 2)
Quarter: 2020Q1

REPORT INFORMATION
  Report Type: Spontaneous
  Country: CH (occurrence: CH)
  Receive Date: 20200311
  Receipt Date: 20200313
  Transmission Date: 20200409
  Serious: Yes (Hospitalization, Other)
  Sender: FDA-Public Use
  Company Number: CH-ASTRAZENECA-2020SE35444

PATIENT
  Age: 94 Year
  Sex: Female

DRUGS (43)
  1. DIGOXIN SANDOZ [Suspect]
     Active Substance: DIGOXIN
     Dosage: UNK (1 AT NOON, SUNDAY BREAK)
     Route: 065
     Dates: end: 20180703
  2. METOLAZON [Suspect]
     Active Substance: METOLAZONE
     Dosage: 2.5 MG, 1X/DAY 1/2-0-0-0
     Route: 065
     Dates: end: 20180710
  3. METO ZEROK [Suspect]
     Active Substance: METOPROLOL SUCCINATE
     Dosage: UNK, 2X/DAY (1-0-0-1)
     Route: 065
  4. KCL-RETARD [Suspect]
     Active Substance: POTASSIUM CHLORIDE
     Dosage: 40 MMOL, DAILY (10 MMOL DRAGEES 0-2-2-0)
     Route: 065
  5. ALDACTONE [Suspect]
     Active Substance: SPIRONOLACTONE
     Dosage: UNK
     Route: 065
     Dates: start: 20180806, end: 20180910
  6. XELJANZ [Suspect]
     Active Substance: TOFACITINIB CITRATE
     Dosage: 5 MG, 2X/DAY 1-0-1-0
     Route: 065
     Dates: end: 201807
  7. NEXIUM CONTROL [Suspect]
     Active Substance: ESOMEPRAZOLE MAGNESIUM
     Dosage: UNK (1 IN THE MORNING)
     Route: 065
     Dates: end: 20180703
  8. AUGMENTIN [Suspect]
     Active Substance: AMOXICILLIN\CLAVULANATE POTASSIUM
     Indication: PNEUMONIA
     Dosage: UNK
     Route: 065
     Dates: start: 20180725, end: 20180730
  9. ELIQUIS [Suspect]
     Active Substance: APIXABAN
     Dosage: UNK UNK, 2X/DAY (1-0-1-0)
     Route: 065
     Dates: start: 20180905, end: 20181010
  10. DAFALGAN [Suspect]
     Active Substance: ACETAMINOPHEN
     Route: 065
     Dates: end: 20180703
  11. DIOVAN [Suspect]
     Active Substance: VALSARTAN
     Dosage: 80 MG, DAILY 1/2-0-1/2-0
     Route: 065
     Dates: end: 20180703
  12. SYMBICORT [Suspect]
     Active Substance: BUDESONIDE\FORMOTEROL FUMARATE DIHYDRATE
     Dosage: UNK UNK, AS NEEDED AS REQUIRED
     Route: 065
  13. CALCIMAGON D3 [Suspect]
     Active Substance: CALCIUM\CHOLECALCIFEROL
     Dosage: 1 DF, 1X/DAY 500/800 TABLETS 1-0-0-0
     Route: 065
  14. FLECTOR EP [Suspect]
     Active Substance: DICLOFENAC EPOLAMINE
     Dosage: UNK
     Route: 065
     Dates: start: 20180816, end: 20180824
  15. PANTOZOL [Suspect]
     Active Substance: PANTOPRAZOLE SODIUM
     Dosage: 40 MG, 1X/DAY 1-0-0-0
     Route: 065
  16. VALSARTAN SANDOZ [Suspect]
     Active Substance: VALSARTAN
     Dosage: UNK (1/2 IN THE MORNING AND 1/2 IN THE EVENING)
     Route: 065
     Dates: end: 20180703
  17. NITROGLYCERIN STREULI [Suspect]
     Active Substance: NITROGLYCERIN
     Dosage: UNK UNK, AS NEEDED
     Route: 065
  18. MAGNESIOCARD [Suspect]
     Active Substance: MAGNESIUM ASPARTATE HYDROCHLORIDE
     Dosage: UNK UNK, 1X/DAY (0-0-1-0)
     Route: 065
  19. MARCUMAR [Suspect]
     Active Substance: PHENPROCOUMON
     Dosage: UNK (MOSTLY 1/4 IN THE MORNING)
     Route: 065
     Dates: end: 20180701
  20. PIPERACILLIN,TAZOBACTAM [Suspect]
     Active Substance: PIPERACILLIN SODIUM\TAZOBACTAM SODIUM
     Dosage: 4.5 G, 3X/DAY (EVERY 8 HOURS)
     Route: 042
     Dates: end: 20180719
  21. PREDNISONE. [Suspect]
     Active Substance: PREDNISONE
     Dosage: UNK
     Route: 065
     Dates: start: 20180724, end: 20180805
  22. ALDACTONE [Suspect]
     Active Substance: SPIRONOLACTONE
     Dosage: UNK (0-0-1/5-0)
     Route: 065
  23. DIOVAN [Suspect]
     Active Substance: VALSARTAN
     Dosage: UNK (1/5-0-0-0)
     Route: 065
  24. PROLIA [Suspect]
     Active Substance: DENOSUMAB
     Dosage: 60.0MG/ML UNKNOWN
     Route: 065
     Dates: end: 201811
  25. XARELTO [Suspect]
     Active Substance: RIVAROXABAN
     Dosage: UNK
     Route: 065
     Dates: end: 20180820
  26. LAXOBERON [Suspect]
     Active Substance: SODIUM PICOSULFATE
     Dosage: UNK
     Route: 065
  27. CALPEROS [CALCIUM CARBONATE] [Suspect]
     Active Substance: CALCIUM CARBONATE
     Dosage: UNK (1 IN THE MORNING)
     Route: 065
     Dates: end: 20180703
  28. FRAGMIN [Suspect]
     Active Substance: DALTEPARIN SODIUM
     Dosage: 5000 IU, 1X/DAY 0-0-1-0 FOR AT LEAST 6 WEEKS
     Route: 065
  29. GUTRON [Suspect]
     Active Substance: MIDODRINE
     Dosage: UNK UNK, 3X/DAY (1-1-1-0)
     Route: 065
  30. PARAGOL N [Suspect]
     Active Substance: MINERAL OIL
     Dosage: UNK
     Route: 065
  31. SIMVASTATIN MEPHA [Suspect]
     Active Substance: SIMVASTATIN
     Dosage: 40 MG, 1X/DAY0-0-1-0
     Route: 065
     Dates: end: 20180703
  32. LIXIANA [Suspect]
     Active Substance: EDOXABAN TOSYLATE
     Dosage: UNK UNK, 1X/DAY (0-0-1-0)
     Route: 065
  33. ESIDREX [Suspect]
     Active Substance: HYDROCHLOROTHIAZIDE
     Dosage: UNK
     Route: 065
  34. METO ZEROK [Suspect]
     Active Substance: METOPROLOL SUCCINATE
     Dosage: 12.5MG UNKNOWN
     Route: 065
  35. DAFALGAN [Suspect]
     Active Substance: ACETAMINOPHEN
     Dosage: 500.0MG AS REQUIRED
     Route: 065
  36. TORASEMIDE [Suspect]
     Active Substance: TORSEMIDE
     Dosage: BETWEEN 1/5 OR 1 OR 1.5 TABLETS EACH MORNING
     Route: 065
  37. BELOC ZOK [Suspect]
     Active Substance: METOPROLOL SUCCINATE
     Dosage: 25 MG, 2X/DAY 1-0-0-1
     Route: 065
  38. FRESUBIN 2 KCAL [CARBOHYDRATES\FATTY ACIDS\MINERALS\PROTEIN\VITAMINS] [Suspect]
     Active Substance: CARBOHYDRATES\FATTY ACIDS\MINERALS\PROTEIN\VITAMINS
     Dosage: 125 G CREAM 1 AT 15:00/21:00 CHOCOLATE
     Route: 065
     Dates: end: 20180703
  39. MAGNESIOCARD [Suspect]
     Active Substance: MAGNESIUM ASPARTATE HYDROCHLORIDE
     Dosage: UNK, 1X/DAY (0-0-2-0)
     Route: 065
  40. CORVATON [Suspect]
     Active Substance: MOLSIDOMINE
     Dosage: UNK (1/5-0-1-0)
     Route: 065
  41. XARELTO [Suspect]
     Active Substance: RIVAROXABAN
     Route: 065
     Dates: start: 20180820
  42. ALDACTONE [Suspect]
     Active Substance: SPIRONOLACTONE
     Dosage: 12.5 MG, 1X/DAY 1/2-0-0-0
     Route: 065
     Dates: end: 20180807
  43. VALSARTAN SANDOZ [Suspect]
     Active Substance: VALSARTAN
     Dosage: UNK (1/5-0-1/5-0), TWO TIMES A DAY
     Route: 065
     Dates: start: 20181010

REACTIONS (23)
  - Fatigue [Unknown]
  - Muscular weakness [Recovered/Resolved]
  - Visual impairment [Recovered/Resolved]
  - Depression [Unknown]
  - Thirst [Recovered/Resolved]
  - Alopecia [Unknown]
  - Dehydration [Recovered/Resolved]
  - Dry mouth [Recovered/Resolved]
  - Pyrexia [Unknown]
  - Delirium [Recovered/Resolved]
  - Diarrhoea [Unknown]
  - Weight decreased [Unknown]
  - Pain in extremity [Unknown]
  - Joint swelling [Unknown]
  - Nightmare [Recovered/Resolved]
  - Hallucination [Unknown]
  - Dementia [Unknown]
  - Dyspnoea [Unknown]
  - Overdose [Recovered/Resolved]
  - Amnesia [Unknown]
  - Hyperhidrosis [Recovered/Resolved]
  - Fluid retention [Unknown]
  - Elephantiasis [Unknown]

NARRATIVE: CASE EVENT DATE: 20180705
